FAERS Safety Report 23401928 (Version 1)
Quarter: 2024Q1

REPORT INFORMATION
  Report Type: Spontaneous
  Country: NZ (occurrence: NZ)
  Receive Date: 20240115
  Receipt Date: 20240115
  Transmission Date: 20240409
  Serious: Yes (Other)
  Sender: FDA-Public Use
  Company Number: NZ-009507513-2401NZL005293

PATIENT
  Sex: Female

DRUGS (3)
  1. PEMBROLIZUMAB [Suspect]
     Active Substance: PEMBROLIZUMAB
  2. ZELBORAF [Concomitant]
     Active Substance: VEMURAFENIB
  3. COTELLIC [Concomitant]
     Active Substance: COBIMETINIB

REACTIONS (7)
  - Hepatic failure [Unknown]
  - Jaundice cholestatic [Unknown]
  - Renal failure [Unknown]
  - Confusional state [Unknown]
  - Fatigue [Unknown]
  - Diarrhoea [Unknown]
  - Asthenia [Unknown]
